FAERS Safety Report 19453041 (Version 1)
Quarter: 2021Q2

REPORT INFORMATION
  Report Type: Report from Study
  Country: US (occurrence: US)
  Receive Date: 20210623
  Receipt Date: 20210623
  Transmission Date: 20210717
  Serious: Yes (Other)
  Sender: FDA-Public Use
  Company Number: US-GLAXOSMITHKLINE-US2021GSK135855

PATIENT
  Sex: Female
  Weight: 70.3 kg

DRUGS (7)
  1. VITAMIN D2 [Concomitant]
     Active Substance: ERGOCALCIFEROL
     Dosage: 50,000 UNIT, 1 CAPSULE WEEKLY
     Dates: start: 20180822
  2. TRAMADOL. [Concomitant]
     Active Substance: TRAMADOL
     Dosage: 50 MG, BID TABLET
     Dates: start: 20171220
  3. ELIDEL [Concomitant]
     Active Substance: PIMECROLIMUS
     Dosage: 1 %, BID TOPICAL CREAM, APPLY TO AFFECTED AREA
     Dates: start: 20180202
  4. ASPIRIN. [Concomitant]
     Active Substance: ASPIRIN
     Dosage: 325 MG, 1 TABLET DAILY
     Dates: start: 20180123
  5. CLOBETASOL [Concomitant]
     Active Substance: CLOBETASOL
     Dosage: 0.05 %, BID TOPICAL CREAM TO AFFECTED AREA
     Dates: start: 20181106
  6. GABAPENTIN. [Concomitant]
     Active Substance: GABAPENTIN
     Dosage: 300 MG, TID 1 CAPSULE 1 CAPSULES QHS
     Dates: start: 20171220
  7. BELIMUMAB [Suspect]
     Active Substance: BELIMUMAB
     Indication: SYSTEMIC LUPUS ERYTHEMATOSUS
     Dosage: 120 MG, CYC EVERY 4 WEEKS
     Route: 042
     Dates: start: 20180207

REACTIONS (1)
  - Non-Hodgkin^s lymphoma [Unknown]

NARRATIVE: CASE EVENT DATE: 20190521
